FAERS Safety Report 10154013 (Version 1)
Quarter: 2014Q2

REPORT INFORMATION
  Report Type: Spontaneous
  Country: US (occurrence: None)
  Receive Date: 20140502
  Receipt Date: 20140502
  Transmission Date: 20141212
  Serious: Yes (Hospitalization)
  Sender: FDA-Public Use
  Company Number: 2014P1003484

PATIENT
  Age: 22 Month
  Sex: Male

DRUGS (1)
  1. GLYBURIDE [Suspect]
     Dosage: ;X1; PO
     Route: 048
     Dates: start: 20131006, end: 20131006

REACTIONS (1)
  - Accidental exposure to product by child [None]
